FAERS Safety Report 7012593-9 (Version None)
Quarter: 2010Q3

REPORT INFORMATION
  Report Type: 
  Country: None (occurrence: None)
  Receive Date: 20100924
  Receipt Date: 20100913
  Transmission Date: 20110219
  Serious: Yes (Other)
  Sender: FDA-Public Use
  Company Number: US-ASTRAZENECA-2010SE42862

PATIENT
  Sex: Male

DRUGS (10)
  1. NEXIUM [Suspect]
     Route: 048
  2. CRESTOR [Suspect]
     Route: 048
  3. KETOCONAZOLE [Concomitant]
  4. BACTRUM [Concomitant]
     Dosage: 400/80
  5. ETIDRONATE DISODIUM [Concomitant]
  6. TEMAZEPAM [Concomitant]
  7. FINASTERIDE [Concomitant]
  8. CYLOSPORINE [Concomitant]
  9. MYCOPHEONOLATE MOFETIL [Concomitant]
  10. TAMSULOSIN HYDROCHLORIDE [Concomitant]

REACTIONS (3)
  - COELIAC DISEASE [None]
  - GASTRECTOMY [None]
  - HEART TRANSPLANT [None]
